FAERS Safety Report 5715049-6 (Version None)
Quarter: 2008Q2

REPORT INFORMATION
  Report Type: 
  Country: None (occurrence: None)
  Receive Date: 20080423
  Receipt Date: 20080414
  Transmission Date: 20081010
  Serious: Yes (Other)
  Sender: FDA-Public Use
  Company Number: US-PFIZER INC-2008032861

PATIENT
  Sex: Female
  Weight: 54.9 kg

DRUGS (3)
  1. LIPITOR [Suspect]
     Indication: BLOOD CHOLESTEROL
  2. DRUG, UNSPECIFIED [Concomitant]
  3. COREG [Concomitant]

REACTIONS (6)
  - ANGINA PECTORIS [None]
  - BURNING SENSATION [None]
  - DYSSTASIA [None]
  - MYALGIA [None]
  - PAIN IN EXTREMITY [None]
  - WEIGHT DECREASED [None]
